FAERS Safety Report 9801301 (Version 1)
Quarter: 2014Q1

REPORT INFORMATION
  Report Type: Spontaneous
  Country: US (occurrence: US)
  Receive Date: 20140107
  Receipt Date: 20140107
  Transmission Date: 20141002
  Serious: No
  Sender: FDA-Public Use
  Company Number: US-GLAXOSMITHKLINE-A1044411A

PATIENT
  Age: 39 Year
  Sex: Female

DRUGS (1)
  1. BENLYSTA [Suspect]
     Indication: SYSTEMIC LUPUS ERYTHEMATOSUS
     Dosage: 120MG EVERY 28 DAYS
     Route: 065
     Dates: start: 20130906

REACTIONS (6)
  - Headache [Recovered/Resolved]
  - Diarrhoea [Recovered/Resolved]
  - Pain [Unknown]
  - Fatigue [Unknown]
  - Arthralgia [Unknown]
  - Bone pain [Unknown]
